FAERS Safety Report 5504589-0 (Version None)
Quarter: 2007Q4

REPORT INFORMATION
  Report Type: 
  Country: None (occurrence: None)
  Receive Date: 20071101
  Receipt Date: 20071025
  Transmission Date: 20080405
  Serious: Yes (Hospitalization)
  Sender: FDA-Public Use
  Company Number: TH-ROXANE LABORATORIES, INC-2007-BP-23471RO

PATIENT
  Age: 53 Year
  Sex: Female

DRUGS (8)
  1. METHOTREXATE [Suspect]
     Indication: RHEUMATOID ARTHRITIS
  2. METHOTREXATE [Suspect]
     Route: 048
  3. SULFASALAZINE [Suspect]
     Indication: RHEUMATOID ARTHRITIS
  4. LEFLUNOMIDE [Suspect]
     Indication: RHEUMATOID ARTHRITIS
  5. ETANERCEPT [Suspect]
     Indication: RHEUMATOID ARTHRITIS
  6. CLOXACILLIN SODIUM [Concomitant]
     Indication: STAPHYLOCOCCAL INFECTION
     Route: 042
  7. DICLOXACILLIN [Concomitant]
     Indication: STAPHYLOCOCCAL INFECTION
     Route: 048
  8. NON-STEROIDAL ANTI-INFLAMMATORY DRUGS [Concomitant]
     Indication: RHEUMATOID ARTHRITIS

REACTIONS (6)
  - CHILLS [None]
  - COUGH [None]
  - DRUG INEFFECTIVE [None]
  - PLEURITIC PAIN [None]
  - PYREXIA [None]
  - THYMUS ABSCESS [None]
